FAERS Safety Report 17809247 (Version 1)
Quarter: 2020Q2

REPORT INFORMATION
  Report Type: Spontaneous
  Country: MX (occurrence: MX)
  Receive Date: 20200520
  Receipt Date: 20200520
  Transmission Date: 20200714
  Serious: Yes (Hospitalization, Other)
  Sender: FDA-Public Use
  Company Number: MX-SA-2019SA344632

PATIENT
  Sex: Female
  Weight: 72 kg

DRUGS (5)
  1. ALMETEC [OLMESARTAN MEDOXOMIL] [Concomitant]
     Dosage: 1 DF, QD
     Route: 048
     Dates: start: 2014
  2. NEBIVOLOL. [Concomitant]
     Active Substance: NEBIVOLOL
     Dosage: 1 DF, HS
     Route: 048
     Dates: start: 2014
  3. ARIMIDEX [Concomitant]
     Active Substance: ANASTROZOLE
     Dosage: UNK
     Route: 065
  4. SHORANT SOLOSTAR [Suspect]
     Active Substance: INSULIN GLULISINE
     Indication: TYPE 2 DIABETES MELLITUS
     Dosage: 18-20 UI/ML
     Route: 065
     Dates: start: 2014
  5. NOVOMIX [Concomitant]
     Active Substance: INSULIN ASPART
     Dosage: 30 U, BID
     Route: 065

REACTIONS (9)
  - Hypertension [Not Recovered/Not Resolved]
  - Diarrhoea [Not Recovered/Not Resolved]
  - Abdominal pain [Not Recovered/Not Resolved]
  - Pharyngitis [Recovered/Resolved]
  - Device issue [Unknown]
  - Incorrect dose administered by device [Unknown]
  - Blood glucose increased [Unknown]
  - Malaise [Not Recovered/Not Resolved]
  - Breast cancer [Recovering/Resolving]

NARRATIVE: CASE EVENT DATE: 2019
